FAERS Safety Report 19211583 (Version 1)
Quarter: 2021Q2

REPORT INFORMATION
  Report Type: Spontaneous
  Country: AT (occurrence: AT)
  Receive Date: 20210504
  Receipt Date: 20210504
  Transmission Date: 20210717
  Serious: Yes (Other)
  Sender: FDA-Public Use
  Company Number: AT-MYLANLABS-2021M1025338

PATIENT
  Age: 67 Year
  Sex: Male
  Weight: 110 kg

DRUGS (9)
  1. EDOXABAN [Concomitant]
     Active Substance: EDOXABAN TOSYLATE
     Dosage: 60 MILLIGRAM
  2. CYCLOSPORINE. [Concomitant]
     Active Substance: CYCLOSPORINE
     Dosage: UNK
  3. KETOCONAZOLE. [Concomitant]
     Active Substance: KETOCONAZOLE
     Dosage: UNK
  4. LISAM [Concomitant]
     Dosage: UNK
  5. DRONEDARONE [Concomitant]
     Active Substance: DRONEDARONE
     Dosage: UNK
  6. ERYTHROMYCIN. [Concomitant]
     Active Substance: ERYTHROMYCIN
     Dosage: UNK
  7. BISOPROLOL [Suspect]
     Active Substance: BISOPROLOL
     Indication: PRODUCT USED FOR UNKNOWN INDICATION
     Dosage: 10 MILLIGRAM
  8. EZEROSU [Concomitant]
     Dosage: UNK
  9. LISINOPRIL. [Suspect]
     Active Substance: LISINOPRIL
     Indication: PRODUCT USED FOR UNKNOWN INDICATION
     Dosage: 10 MILLIGRAM, QD

REACTIONS (4)
  - Hyperlipidaemia [Unknown]
  - Low density lipoprotein increased [Recovered/Resolved]
  - Hypertension [Unknown]
  - Atrial fibrillation [Unknown]
